FAERS Safety Report 11776677 (Version 1)
Quarter: 2015Q4

REPORT INFORMATION
  Report Type: Spontaneous
  Country: US (occurrence: US)
  Receive Date: 20151125
  Receipt Date: 20151125
  Transmission Date: 20160304
  Serious: No
  Sender: FDA-Public Use
  Company Number: US-BAYER-2015-475942

PATIENT
  Age: 71 Year
  Sex: Female
  Weight: 61.22 kg

DRUGS (7)
  1. MIRALAX [Suspect]
     Active Substance: POLYETHYLENE GLYCOL 3350
     Dosage: UNK UNK, QD
     Route: 048
     Dates: start: 2015
  2. VITAMIN C [Concomitant]
     Active Substance: ASCORBIC ACID
  3. BIOTIN [Concomitant]
     Active Substance: BIOTIN
  4. CENTRUM [Concomitant]
     Active Substance: VITAMINS
  5. VITAMIN D [Concomitant]
     Active Substance: CHOLECALCIFEROL
  6. CALTRATE [CALCIUM CARBONATE,COLECALCIFEROL] [Concomitant]
  7. VITAMIN A [Concomitant]
     Active Substance: VITAMIN A

REACTIONS (1)
  - Product use issue [None]
